FAERS Safety Report 8553831 (Version 2)
Quarter: 2012Q4

REPORT INFORMATION
  Report Type: 
  Country: US (occurrence: US)
  Receive Date: 20120509
  Receipt Date: 20121205
  Transmission Date: 20130627
  Serious: Yes (Hospitalization, Other)
  Sender: FDA-Public Use
  Company Number: US-ASTRAZENECA-2012SE28408

PATIENT
  Age: 77 Year
  Sex: Male

DRUGS (6)
  1. CRESTOR [Suspect]
     Route: 048
  2. CRESTOR [Suspect]
     Route: 048
  3. CRESTOR [Suspect]
     Route: 048
  4. PLAVIX [Concomitant]
  5. PRADAXA [Concomitant]
  6. SYNTHROID [Concomitant]

REACTIONS (19)
  - Cardiac disorder [Unknown]
  - Chronic obstructive pulmonary disease [Unknown]
  - Nephropathy [Unknown]
  - Renal failure [Unknown]
  - Peripheral artery thrombosis [Unknown]
  - Aneurysm [Unknown]
  - Compartment syndrome [Unknown]
  - Staphylococcal infection [Unknown]
  - Myocardial infarction [Unknown]
  - Pain [Unknown]
  - Amputation stump pain [Unknown]
  - Diabetes mellitus [Unknown]
  - Tremor [Unknown]
  - Malaise [Unknown]
  - Dehydration [Unknown]
  - Neuropathy peripheral [Unknown]
  - Hypersensitivity [Unknown]
  - Blood cholesterol increased [Unknown]
  - Blood triglycerides increased [Unknown]
